FAERS Safety Report 9397350 (Version 1)
Quarter: 2013Q3

REPORT INFORMATION
  Report Type: Spontaneous
  Country: US (occurrence: US)
  Receive Date: 20130712
  Receipt Date: 20130712
  Transmission Date: 20140515
  Serious: Yes (Hospitalization)
  Sender: FDA-Public Use
  Company Number: US-MPIJNJ-2013-05261

PATIENT
  Age: 64 Year
  Sex: Male
  Weight: 78.9 kg

DRUGS (4)
  1. VELCADE [Suspect]
     Indication: PLASMA CELL MYELOMA
     Dosage: 2.68 MG, UNK
     Route: 058
     Dates: start: 20130506, end: 20130620
  2. BENDAMUSTINE [Suspect]
     Indication: PLASMA CELL MYELOMA
     Dosage: 247 MG, UNK
     Route: 042
     Dates: start: 20130506
  3. DOXORUBICIN [Suspect]
     Dosage: 60 MG, UNK
     Route: 042
     Dates: start: 20130509
  4. ACYCLOVIR                          /00587301/ [Concomitant]
     Indication: PROPHYLAXIS
     Dosage: 400 MG, UNK
     Route: 048
     Dates: start: 20130520

REACTIONS (1)
  - Lung disorder [Not Recovered/Not Resolved]
